FAERS Safety Report 6164825-7 (Version None)
Quarter: 2009Q2

REPORT INFORMATION
  Report Type: 
  Country: None (occurrence: None)
  Receive Date: 20090423
  Receipt Date: 20090415
  Transmission Date: 20091009
  Serious: Yes (Disabling)
  Sender: FDA-Public Use
  Company Number: PHEH2009US02769

PATIENT
  Sex: Female

DRUGS (10)
  1. EXELON [Suspect]
     Indication: DEMENTIA
     Dosage: 9.5 MG, 1 PATCH QD
     Route: 062
     Dates: start: 20080915, end: 20090302
  2. EXELON [Suspect]
     Indication: MEMORY IMPAIRMENT
  3. SIMVASTATIN [Concomitant]
     Indication: HYPERCHOLESTEROLAEMIA
     Dosage: 20 MG, QD
     Route: 048
  4. LEVOTHYROXINE SODIUM [Concomitant]
     Indication: HYPOTHYROIDISM
     Dosage: 50 MG, UNK
     Route: 048
  5. SULINDAC [Concomitant]
     Indication: ARTHRITIS
     Dosage: 150 MG, BID PRN
     Route: 048
  6. ALENDRONATE SODIUM [Concomitant]
     Indication: BONE DISORDER
     Dosage: 70 MG, WEEKLY
     Route: 048
  7. ENABLEX [Concomitant]
     Indication: BLADDER DISORDER
     Dosage: 7.5 MG, QD
     Route: 048
     Dates: start: 20090101, end: 20090201
  8. VESICARE [Concomitant]
     Indication: BLADDER DISORDER
     Dosage: 5 MG, QD
     Route: 048
     Dates: start: 20081001, end: 20090101
  9. NAMENDA [Concomitant]
     Indication: MEMORY IMPAIRMENT
     Dosage: 10 MG, BID
     Route: 048
  10. NAMENDA [Concomitant]
     Indication: DEMENTIA

REACTIONS (4)
  - APPLICATION SITE ERYTHEMA [None]
  - APPLICATION SITE IRRITATION [None]
  - APPLICATION SITE PAIN [None]
  - APPLICATION SITE PRURITUS [None]
